FAERS Safety Report 9502890 (Version 1)
Quarter: 2013Q3

REPORT INFORMATION
  Report Type: Spontaneous
  Country: CN (occurrence: CN)
  Receive Date: 20130906
  Receipt Date: 20130906
  Transmission Date: 20140515
  Serious: Yes (Other)
  Sender: FDA-Public Use
  Company Number: CN-JNJFOC-20130813772

PATIENT
  Sex: 0

DRUGS (8)
  1. DOXORUBICIN [Suspect]
     Indication: HAEMATOLOGICAL MALIGNANCY
     Route: 042
  2. RITUXIMAB [Suspect]
     Indication: HAEMATOLOGICAL MALIGNANCY
     Route: 065
  3. CYCLOPHOSPHAMIDE [Suspect]
     Indication: HAEMATOLOGICAL MALIGNANCY
     Route: 065
  4. ONCOVIN [Suspect]
     Indication: HAEMATOLOGICAL MALIGNANCY
     Route: 065
  5. PREDNISONE [Suspect]
     Indication: HAEMATOLOGICAL MALIGNANCY
     Route: 065
  6. BLEOMYCIN [Suspect]
     Indication: HAEMATOLOGICAL MALIGNANCY
     Route: 065
  7. ETOPOSIDE [Suspect]
     Indication: HAEMATOLOGICAL MALIGNANCY
     Route: 065
  8. PROCARBAZINE [Suspect]
     Indication: HAEMATOLOGICAL MALIGNANCY
     Route: 065

REACTIONS (2)
  - Traumatic lung injury [Unknown]
  - Pneumonia [Unknown]
